FAERS Safety Report 9324562 (Version 1)
Quarter: 2013Q2

REPORT INFORMATION
  Report Type: Spontaneous
  Country: US (occurrence: US)
  Receive Date: 20130603
  Receipt Date: 20130603
  Transmission Date: 20140414
  Serious: Yes (Hospitalization)
  Sender: FDA-Public Use
  Company Number: US-BRACCO-009486

PATIENT
  Age: 32 Year
  Sex: Female

DRUGS (2)
  1. GASTROGRAFIN [Suspect]
     Indication: X-RAY WITH CONTRAST UPPER GASTROINTESTINAL TRACT
  2. OXYGEN [Concomitant]
     Dosage: VIA NASAL CANNULA
     Route: 055

REACTIONS (2)
  - Acute respiratory distress syndrome [Recovering/Resolving]
  - Pneumonia aspiration [Recovering/Resolving]
